FAERS Safety Report 17412944 (Version 1)
Quarter: 2020Q1

REPORT INFORMATION
  Report Type: Report from Study
  Country: IT (occurrence: IT)
  Receive Date: 20200213
  Receipt Date: 20200213
  Transmission Date: 20200409
  Serious: Yes (Other)
  Sender: FDA-Public Use
  Company Number: IT-ACCORD-172421

PATIENT
  Age: 42 Year
  Sex: Female

DRUGS (2)
  1. CARBOPLATIN. [Suspect]
     Active Substance: CARBOPLATIN
     Indication: BREAST NEOPLASM
     Dosage: RECEIVED TILL 04-FEB-2020
     Route: 042
     Dates: start: 20200103
  2. PACLITAXEL/PACLITAXEL LIPOSOME [Suspect]
     Active Substance: PACLITAXEL
     Indication: BREAST NEOPLASM
     Dosage: RECEIVED TILL 04-FEB-2020
     Route: 042
     Dates: start: 20200103

REACTIONS (1)
  - Transaminases increased [Not Recovered/Not Resolved]

NARRATIVE: CASE EVENT DATE: 20200114
